FAERS Safety Report 9347348 (Version 1)
Quarter: 2013Q2

REPORT INFORMATION
  Report Type: Report from Study
  Country: US (occurrence: US)
  Receive Date: 20130613
  Receipt Date: 20130613
  Transmission Date: 20140414
  Serious: Yes (Hospitalization)
  Sender: FDA-Public Use
  Company Number: US-US-EMD SERONO, INC.-7217005

PATIENT
  Age: 61 Year
  Sex: Female
  Weight: 71 kg

DRUGS (3)
  1. REBIF [Suspect]
     Indication: MULTIPLE SCLEROSIS
     Route: 058
     Dates: start: 20110531
  2. LEXAPRO [Concomitant]
     Indication: DEPRESSION
     Dates: start: 2008
  3. LOTREL                             /01289101/ [Concomitant]
     Indication: HYPERTENSION

REACTIONS (7)
  - Intestinal fistula [Recovering/Resolving]
  - Incision site abscess [Recovering/Resolving]
  - Incision site cellulitis [Recovering/Resolving]
  - Clostridium difficile infection [Recovered/Resolved]
  - Suicidal ideation [Recovered/Resolved]
  - Urinary tract infection [Unknown]
  - Pollakiuria [Unknown]
